FAERS Safety Report 16030743 (Version 3)
Quarter: 2019Q2

REPORT INFORMATION
  Report Type: Spontaneous
  Country: US (occurrence: US)
  Receive Date: 20190304
  Receipt Date: 20190422
  Transmission Date: 20190711
  Serious: No
  Sender: FDA-Public Use
  Company Number: US-PFIZER INC-2019088167

PATIENT
  Age: 56 Year
  Sex: Female

DRUGS (1)
  1. XELJANZ XR [Suspect]
     Active Substance: TOFACITINIB CITRATE
     Dosage: 11 MG, UNK
     Dates: start: 201901, end: 2019

REACTIONS (6)
  - Nasopharyngitis [Unknown]
  - Pharyngitis [Unknown]
  - Pharyngitis streptococcal [Unknown]
  - Malaise [Unknown]
  - Respiratory tract congestion [Unknown]
  - Immune system disorder [Unknown]

NARRATIVE: CASE EVENT DATE: 2019
